FAERS Safety Report 11645974 (Version 2)
Quarter: 2016Q2

REPORT INFORMATION
  Report Type: Spontaneous
  Country: US (occurrence: US)
  Receive Date: 20151020
  Receipt Date: 20160429
  Transmission Date: 20160815
  Serious: No
  Sender: FDA-Public Use
  Company Number: US-ROCHE-1607694

PATIENT
  Age: 69 Year
  Sex: Male
  Weight: 65.83 kg

DRUGS (15)
  1. ESBRIET [Suspect]
     Active Substance: PIRFENIDONE
     Route: 048
     Dates: start: 20150311
  2. ACIPHEX [Concomitant]
     Active Substance: RABEPRAZOLE SODIUM
     Indication: GASTROOESOPHAGEAL REFLUX DISEASE
  3. ATROVENT HFA [Concomitant]
     Active Substance: IPRATROPIUM BROMIDE
     Dosage: 0.02 % SOLUTION FOR INHALATION 1 UNIT USING A NEBULIZER TWICE A DAY AS NEEDED FOR WHEEZING
     Route: 065
  4. ACIPHEX [Concomitant]
     Active Substance: RABEPRAZOLE SODIUM
     Dosage: ONCE DAILY
     Route: 065
  5. ESBRIET [Suspect]
     Active Substance: PIRFENIDONE
     Indication: IDIOPATHIC PULMONARY FIBROSIS
     Dosage: 3 IN THE MORNING, 2 IN AFTERNOON AND 3 IN EVENING
     Route: 048
     Dates: start: 20140725
  6. VITAMIN E [Concomitant]
     Active Substance: .ALPHA.-TOCOPHEROL
     Dosage: 500UNITS TAKE 1 SOFTGEL CAPSULE BY MOUTH DAILY
     Route: 048
  7. FAMOTIDINE. [Concomitant]
     Active Substance: FAMOTIDINE
     Dosage: EVERY EVENING AT BEDTIME
     Route: 048
  8. ATROVENT HFA [Concomitant]
     Active Substance: IPRATROPIUM BROMIDE
     Dosage: ACTUATION AEROSOL INHALER 2 PUFFS FROM THE INHALE THREE TIMES A DAY AS NEEDED
     Route: 065
  9. ATROVENT HFA [Concomitant]
     Active Substance: IPRATROPIUM BROMIDE
     Dosage: ACTUATION AEROSOL INHALER 2 PUFFS FROM THE INHALER THREE TIMES A DAY
     Route: 065
  10. DOXYCYCLINE MONOHYDRATE [Suspect]
     Active Substance: DOXYCYCLINE
     Indication: BRONCHITIS
     Route: 048
  11. VITAMIN C [Concomitant]
     Active Substance: ASCORBIC ACID
     Route: 048
  12. VALIUM [Concomitant]
     Active Substance: DIAZEPAM
     Route: 048
  13. ASPIRIN. [Concomitant]
     Active Substance: ASPIRIN
     Route: 048
  14. MUCINEX [Concomitant]
     Active Substance: GUAIFENESIN
  15. METAMUCIL [Concomitant]
     Active Substance: PLANTAGO SEED
     Dosage: 2 TABLETS
     Route: 048

REACTIONS (4)
  - Blood pressure fluctuation [Recovered/Resolved]
  - Gastrointestinal disorder [Unknown]
  - Fatigue [Not Recovered/Not Resolved]
  - Dysgeusia [Unknown]

NARRATIVE: CASE EVENT DATE: 201507
